FAERS Safety Report 13301402 (Version 1)
Quarter: 2017Q1

REPORT INFORMATION
  Report Type: Spontaneous
  Country: US (occurrence: US)
  Receive Date: 20170307
  Receipt Date: 20170307
  Transmission Date: 20170428
  Serious: No
  Sender: FDA-Public Use
  Company Number: US-DEPOMED, INC.-US-2016DEP010138

PATIENT

DRUGS (3)
  1. POTASSIUM [Concomitant]
     Active Substance: POTASSIUM
     Indication: PRODUCT USED FOR UNKNOWN INDICATION
     Dosage: 10 MG, 6 TIMES PER DAY
     Route: 048
  2. GRALISE [Suspect]
     Active Substance: GABAPENTIN
     Dosage: UNK
     Dates: start: 20160606
  3. GRALISE [Suspect]
     Active Substance: GABAPENTIN
     Indication: BACK PAIN
     Dosage: 300 MG, QD
     Route: 048

REACTIONS (2)
  - Product use issue [Not Recovered/Not Resolved]
  - Muscle spasms [Recovered/Resolved]
